FAERS Safety Report 7480662-5 (Version None)
Quarter: 2011Q2

REPORT INFORMATION
  Report Type: 
  Country: None (occurrence: None)
  Receive Date: 20110504
  Receipt Date: 20110419
  Transmission Date: 20111010
  Serious: Yes (Hospitalization)
  Sender: FDA-Public Use
  Company Number: 2009BI014949

PATIENT
  Age: 73 Year
  Sex: Male
  Weight: 80.7 kg

DRUGS (9)
  1. CIPROFLOXACIN HCL [Concomitant]
  2. INTERFERON [Concomitant]
  3. IBRITUMOMAB TIUXETAN (IBRITUMOMAB TIUXETAN) [Suspect]
     Indication: FOLLICLE CENTRE LYMPHOMA, FOLLICULAR GRADE I, II, III
     Dosage: 130 MBQ, 1X, IV
     Route: 042
     Dates: start: 20081007, end: 20081007
  4. RITUXAN [Suspect]
     Indication: FOLLICLE CENTRE LYMPHOMA, FOLLICULAR GRADE I, II, III STAGE IV
     Dosage: 250 MG/M2, 1X, IV DRIP
     Route: 041
     Dates: start: 20081014, end: 20081014
  5. RITUXAN [Suspect]
     Indication: FOLLICLE CENTRE LYMPHOMA, FOLLICULAR GRADE I, II, III STAGE IV
     Dosage: 250 MG/M2, 1X, IV DRIP
     Route: 041
     Dates: start: 20081007, end: 20081007
  6. LOXONIN [Concomitant]
  7. POLARAMINE [Concomitant]
  8. STRONGER NEO-MINOPHAGEN C [Concomitant]
  9. ZEVALIN [Suspect]
     Indication: FOLLICLE CENTRE LYMPHOMA, FOLLICULAR GRADE I, II, III STAGE IV
     Dosage: 11.1 MBQ/KG.1X,IV
     Route: 042
     Dates: start: 20081014, end: 20081014

REACTIONS (1)
  - BONE MARROW FAILURE [None]
